FAERS Safety Report 8558944-5 (Version None)
Quarter: 2012Q3

REPORT INFORMATION
  Report Type: 
  Country: None (occurrence: None)
  Receive Date: 20120802
  Receipt Date: 20120727
  Transmission Date: 20120928
  Serious: Yes (Hospitalization, Other)
  Sender: FDA-Public Use
  Company Number: US-009507513-1207USA012280

PATIENT

DRUGS (20)
  1. ATENOLOL [Suspect]
     Dosage: 25 MG, UNK
     Route: 048
  2. ACETAMINOPHEN [Concomitant]
     Dosage: 500 MG, UNK
     Route: 048
  3. LOPERAMIDE HCL [Concomitant]
     Dosage: 1 DF, PRN
     Route: 048
  4. ASPIRIN [Concomitant]
     Dosage: 1 DF, QD
  5. LEVALBUTEROL HYDROCHLORIDE [Concomitant]
     Dosage: 0.63MG/3ML
  6. ZETIA [Concomitant]
     Dosage: 10 MG, QD
     Route: 048
  7. CODEINE (+) GUAIFENESIN [Concomitant]
     Dosage: 5 ML, TID
     Route: 048
  8. LEVOTHYROXINE SODIUM [Concomitant]
     Dosage: 50 MICROGRAM, QD
     Route: 048
  9. PSEUDOEPHEDRINE HCL [Concomitant]
     Dosage: 5 ML, TID
     Route: 048
  10. LOVAZA [Concomitant]
     Dosage: 1 DF, QD
     Route: 048
  11. SYMBICORT [Suspect]
     Dosage: 80/4.5 MCG, 2 PUFFS TO TIMES
     Route: 055
  12. FENOFIBRATE [Concomitant]
     Dosage: 134 MG, UNK
     Route: 048
  13. SERTRALINE HYDROCHLORIDE [Concomitant]
     Dosage: 50 MG, QD
     Route: 048
  14. DEXILANT [Concomitant]
     Dosage: 30 MG, QD
     Route: 048
  15. PLAVIX [Concomitant]
     Dosage: 75 MG, QD
     Route: 048
  16. PRINIVIL [Suspect]
     Dosage: 10 MG, QD
     Route: 048
  17. SYMBICORT [Suspect]
     Dosage: 80/4.5 MCG, 2 PUFFS TO TIMES
     Route: 045
  18. CALCIUM CARBONATE (+) CHOLECALCIFEROL [Concomitant]
     Dosage: 2000 IU, UNK
     Route: 048
  19. CALCIUM (UNSPECIFIED) [Suspect]
     Dosage: 1 DF, QD
     Route: 048
  20. DIPHENHYDRAMINE HCL [Concomitant]
     Dosage: 2 DF, 4 TIMES A DAY
     Route: 048

REACTIONS (19)
  - DIVERTICULUM [None]
  - VITAMIN D DEFICIENCY [None]
  - BRONCHOPNEUMONIA [None]
  - BRONCHITIS CHRONIC [None]
  - CHOLELITHIASIS [None]
  - CORONARY ARTERY DISEASE [None]
  - DEPRESSION [None]
  - CYSTOCELE [None]
  - GASTROOESOPHAGEAL REFLUX DISEASE [None]
  - SPINAL OSTEOARTHRITIS [None]
  - ESSENTIAL HYPERTENSION [None]
  - RHINITIS ALLERGIC [None]
  - ARTHROPATHY [None]
  - HYPERLIPIDAEMIA [None]
  - ANGINA PECTORIS [None]
  - CHRONIC OBSTRUCTIVE PULMONARY DISEASE [None]
  - CIRCUMSTANCE OR INFORMATION CAPABLE OF LEADING TO MEDICATION ERROR [None]
  - HYPOTHYROIDISM [None]
  - PELVIC PAIN [None]
